FAERS Safety Report 7327726-4 (Version None)
Quarter: 2011Q1

REPORT INFORMATION
  Report Type: 
  Country: None (occurrence: None)
  Receive Date: 20110303
  Receipt Date: 20101029
  Transmission Date: 20110831
  Serious: Yes (Hospitalization)
  Sender: FDA-Public Use
  Company Number: US-GENZYME-CLOF-1000812

PATIENT
  Sex: Male
  Weight: 74 kg

DRUGS (4)
  1. ARA-C [Suspect]
     Dosage: 1920 MG, QD
     Route: 042
     Dates: start: 20091202, end: 20091205
  2. ARA-C [Suspect]
     Indication: ACUTE MYELOID LEUKAEMIA
     Dosage: 1940 MG, QDX5
     Route: 042
     Dates: start: 20090914, end: 20090918
  3. CLOFARABINE [Suspect]
     Indication: ACUTE MYELOID LEUKAEMIA
     Dosage: 77.6 MG, QDX5
     Route: 042
     Dates: start: 20090914, end: 20090918
  4. CLOFARABINE [Suspect]
     Dosage: 76.8 MG, QD
     Route: 042
     Dates: start: 20091202, end: 20091205

REACTIONS (3)
  - RENAL FAILURE ACUTE [None]
  - ATRIAL FIBRILLATION [None]
  - SEPSIS [None]
